FAERS Safety Report 13726045 (Version 3)
Quarter: 2017Q3

REPORT INFORMATION
  Report Type: Report from Study
  Country: CA (occurrence: CA)
  Receive Date: 20170707
  Receipt Date: 20170921
  Transmission Date: 20171127
  Serious: Yes (Other)
  Sender: FDA-Public Use
  Company Number: CA-GLAXOSMITHKLINE-CA2017GSK103886

PATIENT
  Age: 52 Year
  Sex: Female

DRUGS (2)
  1. PREDNISONE. [Concomitant]
     Active Substance: PREDNISONE
     Indication: ASTHMA
     Dosage: UNK
  2. SALBUTAMOL SULPHATE [Suspect]
     Active Substance: ALBUTEROL SULFATE
     Indication: ASTHMA
     Dosage: UNK

REACTIONS (11)
  - Meniscus operation [Unknown]
  - Wheezing [Unknown]
  - Pulmonary mycosis [Unknown]
  - Fibromyalgia [Unknown]
  - Depression [Unknown]
  - Back pain [Unknown]
  - Dyspnoea [Unknown]
  - Rash generalised [Unknown]
  - Anosmia [Unknown]
  - Scoliosis [Unknown]
  - Back disorder [Unknown]

NARRATIVE: CASE EVENT DATE: 2016
